FAERS Safety Report 7529364-7 (Version None)
Quarter: 2011Q2

REPORT INFORMATION
  Report Type: 
  Country: None (occurrence: None)
  Receive Date: 20110607
  Receipt Date: 20110531
  Transmission Date: 20111010
  Serious: Yes (Death, Hospitalization)
  Sender: FDA-Public Use
  Company Number: ES-ROCHE-780805

PATIENT
  Age: 30 Year
  Sex: Female

DRUGS (2)
  1. OSELTAMIVIR [Suspect]
     Indication: H1N1 INFLUENZA
     Dosage: PREVIOUS TREATMENT
     Route: 065
  2. OSELTAMIVIR [Suspect]
     Route: 065
     Dates: start: 20100105

REACTIONS (2)
  - DRUG INEFFECTIVE [None]
  - PATHOGEN RESISTANCE [None]
